FAERS Safety Report 10424191 (Version 1)
Quarter: 2014Q3

REPORT INFORMATION
  Report Type: Spontaneous
  Country: US (occurrence: None)
  Receive Date: 20140722
  Receipt Date: 20140722
  Transmission Date: 20150326
  Serious: No
  Sender: FDA-Public Use
  Company Number: 163-10004-14052300

PATIENT
  Age: 58 Year
  Sex: Male
  Weight: 83.92 kg

DRUGS (5)
  1. OTEZLA [Suspect]
     Active Substance: APREMILAST
     Indication: PSORIATIC ARTHROPATHY
     Dosage: 60 MG, 2 IN 1 D, PO
     Route: 048
     Dates: start: 20140502
  2. CITALOPRAM (CITALOPRAM) (UNKNOWN) [Concomitant]
  3. FENOFIBRATE (FENOFIBRATE) (UNKNOWN) [Concomitant]
  4. VALTREX (VALACICLOVIR HYDROCHLORIDE) (UNKNOWN) [Concomitant]
  5. WELLBUTRIN (BUPROPION HYDROCHLORIDE) (UNKNOWN) [Concomitant]

REACTIONS (3)
  - Nausea [None]
  - Abdominal pain upper [None]
  - Diarrhoea [None]

NARRATIVE: CASE EVENT DATE: 20140503
